FAERS Safety Report 9495383 (Version 4)
Quarter: 2014Q1

REPORT INFORMATION
  Report Type: Spontaneous
  Country: CH (occurrence: CH)
  Receive Date: 20130903
  Receipt Date: 20140326
  Transmission Date: 20141002
  Serious: Yes (Other)
  Sender: FDA-Public Use
  Company Number: CH-GLAXOSMITHKLINE-B0919469A

PATIENT
  Sex: Male
  Weight: 85 kg

DRUGS (2)
  1. LAMICTAL [Suspect]
     Indication: EPILEPSY
     Dosage: 150MG TWICE PER DAY
     Route: 048
     Dates: start: 20110403
  2. KEPPRA [Concomitant]
     Dosage: 1000MG TWICE PER DAY
     Route: 048

REACTIONS (4)
  - Mycosis fungoides [Recovered/Resolved]
  - Skin lesion [Unknown]
  - Inflammation [Recovered/Resolved]
  - Pigmentation disorder [Unknown]
